FAERS Safety Report 11135459 (Version 1)
Quarter: 2015Q2

REPORT INFORMATION
  Report Type: Spontaneous
  Country: US (occurrence: None)
  Receive Date: 20150522
  Receipt Date: 20150522
  Transmission Date: 20150821
  Serious: No
  Sender: FDA-Public Use
  Company Number: None

PATIENT
  Age: 38 Year
  Sex: Female
  Weight: 71.67 kg

DRUGS (2)
  1. ADDERALL [Concomitant]
     Active Substance: AMPHETAMINE ASPARTATE\AMPHETAMINE SULFATE\DEXTROAMPHETAMINE SACCHARATE\DEXTROAMPHETAMINE SULFATE
  2. AZITHROMYCIN [Suspect]
     Active Substance: AZITHROMYCIN ANHYDROUS
     Indication: TOOTH INFECTION
     Dosage: 6 PILLS ONCE DAILY TAKEN BY MOUTH
     Route: 048
     Dates: start: 20150520, end: 20150520

REACTIONS (11)
  - Discomfort [None]
  - Pharyngeal oedema [None]
  - No reaction on previous exposure to drug [None]
  - Hypoaesthesia [None]
  - Oropharyngeal pain [None]
  - Constipation [None]
  - Arthralgia [None]
  - Abdominal distension [None]
  - Hyperhidrosis [None]
  - Pyrexia [None]
  - Dizziness [None]

NARRATIVE: CASE EVENT DATE: 20150520
